FAERS Safety Report 12548187 (Version 2)
Quarter: 2016Q4

REPORT INFORMATION
  Report Type: Spontaneous
  Country: US (occurrence: US)
  Receive Date: 20160712
  Receipt Date: 20161201
  Transmission Date: 20170207
  Serious: No
  Sender: FDA-Public Use
  Company Number: US-PFIZER INC-2016337604

PATIENT
  Age: 53 Year
  Sex: Male

DRUGS (1)
  1. FENTANYL. [Suspect]
     Active Substance: FENTANYL
     Indication: PAIN
     Dosage: 75 UG, PATCH
     Route: 062
     Dates: start: 2006

REACTIONS (2)
  - Anxiety [Unknown]
  - Nervousness [Unknown]
